FAERS Safety Report 8055521-X (Version None)
Quarter: 2012Q1

REPORT INFORMATION
  Report Type: 
  Country: None (occurrence: None)
  Receive Date: 20120119
  Receipt Date: 20120113
  Transmission Date: 20120608
  Serious: Yes (Death)
  Sender: FDA-Public Use
  Company Number: JP-SANOFI-AVENTIS-2011SA003726

PATIENT
  Age: 77 Year
  Sex: Female
  Weight: 58 kg

DRUGS (31)
  1. CEFTRIAXONE SODIUM [Concomitant]
     Indication: INFECTIOUS PERITONITIS
     Route: 041
     Dates: start: 20100402, end: 20100403
  2. FLUOROURACIL [Suspect]
     Route: 040
     Dates: start: 20100316, end: 20100316
  3. FLUOROURACIL [Suspect]
     Dosage: INFUSION
     Dates: start: 20100330, end: 20100330
  4. FLUTICASONE PROPIONATE [Concomitant]
     Indication: ASTHMA
  5. ZANTAC [Concomitant]
     Indication: GASTRIC ULCER
     Route: 048
     Dates: start: 20100324, end: 20100401
  6. IMIPENEM AND CILASTATIN SODIUM [Concomitant]
     Route: 041
     Dates: start: 20100402, end: 20100408
  7. OMEPRAZOLE [Concomitant]
     Route: 041
     Dates: start: 20100402, end: 20100408
  8. DOPAMINE HCL [Concomitant]
     Indication: BLOOD PRESSURE DECREASED
     Route: 041
     Dates: start: 20100402, end: 20100404
  9. LEVOLEUCOVORIN CALCIUM [Suspect]
     Route: 041
     Dates: end: 20100330
  10. FLUOROURACIL [Suspect]
     Route: 040
     Dates: start: 20100330, end: 20100330
  11. ORGADRONE [Concomitant]
     Indication: PREMEDICATION
     Route: 041
     Dates: start: 20100316, end: 20100330
  12. SCOPOLAMINE [Concomitant]
     Route: 048
     Dates: start: 20100324
  13. FENTANYL [Concomitant]
     Indication: ABDOMINAL PAIN
     Route: 041
     Dates: start: 20100402, end: 20100409
  14. LEVOLEUCOVORIN CALCIUM [Suspect]
     Route: 041
     Dates: start: 20100316
  15. OXALIPLATIN [Suspect]
     Dosage: 85 MG/M2
     Route: 041
     Dates: start: 20100316, end: 20100316
  16. NOVAMIN [Concomitant]
     Indication: NAUSEA
     Route: 048
     Dates: start: 20100324, end: 20100401
  17. MORPHINE HYDROCHLORIDE [Concomitant]
     Indication: ABDOMINAL PAIN
     Route: 041
     Dates: start: 20100402, end: 20100403
  18. HUMULIN R [Concomitant]
     Indication: DIABETES MELLITUS
     Route: 058
     Dates: start: 20100402, end: 20100408
  19. NOREPINEPHRINE BITARTRATE [Concomitant]
     Indication: BLOOD PRESSURE DECREASED
     Route: 041
     Dates: start: 20100402, end: 20100408
  20. ANYRUME S [Concomitant]
     Route: 048
     Dates: start: 20100228
  21. OXYCONTIN [Concomitant]
     Indication: CANCER PAIN
     Route: 048
     Dates: start: 20100309, end: 20100421
  22. CLOSTRIDIUM BUTYRICUM [Concomitant]
     Indication: ENTEROCOLITIS
     Route: 048
     Dates: start: 20100324, end: 20100401
  23. LOXOPROFEN SODIUM [Concomitant]
     Route: 048
     Dates: start: 20100324
  24. ALBUMIN (HUMAN) [Concomitant]
     Indication: HYPOALBUMINAEMIA
     Route: 041
     Dates: start: 20100402, end: 20100402
  25. PROPOFOL [Concomitant]
     Indication: SEDATIVE THERAPY
     Route: 041
     Dates: start: 20100403, end: 20100405
  26. FLUOROURACIL [Suspect]
     Dosage: INFUSION
     Dates: start: 20100316, end: 20100316
  27. OXALIPLATIN [Suspect]
     Dosage: INFUSION
     Dates: start: 20100330, end: 20100330
  28. GRANISETRON [Concomitant]
     Indication: PREMEDICATION
     Route: 041
     Dates: start: 20100316, end: 20100330
  29. NAPROXEN [Concomitant]
     Indication: PAIN
     Route: 048
     Dates: start: 20100324, end: 20100401
  30. MAGNESIUM OXIDE [Concomitant]
     Indication: CONSTIPATION
     Route: 048
     Dates: start: 20100324, end: 20100401
  31. MIDAZOLAM [Concomitant]
     Indication: SEDATIVE THERAPY
     Route: 041
     Dates: start: 20100402, end: 20100405

REACTIONS (5)
  - PLATELET COUNT DECREASED [None]
  - NEUTROPHIL COUNT DECREASED [None]
  - WHITE BLOOD CELL COUNT DECREASED [None]
  - LARGE INTESTINE PERFORATION [None]
  - INTESTINAL FISTULA [None]
